FAERS Safety Report 25784020 (Version 2)
Quarter: 2025Q4

REPORT INFORMATION
  Report Type: Report from Study
  Country: JP (occurrence: JP)
  Receive Date: 20250910
  Receipt Date: 20251010
  Transmission Date: 20260118
  Serious: Yes (Hospitalization, Other)
  Sender: ABBVIE
  Company Number: JP-TAKEDA-2019TJP000724

PATIENT
  Age: 53 Year
  Sex: Male
  Weight: 62 kg

DRUGS (10)
  1. LEUPLIN [Suspect]
     Active Substance: LEUPROLIDE ACETATE
     Indication: Bulbospinal muscular atrophy congenital
     Dosage: 11.25 MILLIGRAM, Q3MONTHS
     Route: 058
     Dates: start: 20180205, end: 20181029
  2. LEUPLIN [Suspect]
     Active Substance: LEUPROLIDE ACETATE
     Dosage: 11.25 MILLIGRAM, Q3MONTHS
     Route: 058
     Dates: start: 20190902, end: 20190902
  3. BISOPROLOL [Concomitant]
     Active Substance: BISOPROLOL
     Indication: Graves^ disease
     Dosage: 2.5 MILLIGRAM
     Dates: start: 20240318
  4. DILTIAZEM HYDROCHLORIDE [Concomitant]
     Active Substance: DILTIAZEM HYDROCHLORIDE
     Indication: Hyperthyroidism
     Dosage: 100 MILLIGRAM
     Dates: end: 20190317
  5. GASLON [Concomitant]
     Active Substance: IRSOGLADINE MALEATE
     Indication: Gastric ulcer
     Dosage: 4 MILLIGRAM
  6. CARBIMAZOLE [Concomitant]
     Active Substance: CARBIMAZOLE
     Indication: Graves^ disease
     Dosage: 5 MILLIGRAM
     Dates: end: 20200606
  7. CARBIMAZOLE [Concomitant]
     Active Substance: CARBIMAZOLE
     Indication: Graves^ disease
     Dosage: 10 MILLIGRAM
     Dates: start: 20210430, end: 20250627
  8. RINDERON VG [Concomitant]
     Active Substance: BETAMETHASONE VALERATE\GENTAMICIN SULFATE
     Indication: Pyoderma gangrenosum
     Dosage: 5 GRAM
  9. RIVOTRIL [Concomitant]
     Active Substance: CLONAZEPAM
     Indication: Hyperthyroidism
     Dosage: 1 MILLIGRAM
  10. POTASSIUM IODIDE [Concomitant]
     Active Substance: POTASSIUM IODIDE
     Indication: Graves^ disease
     Dosage: 50 MILLIGRAM
     Dates: start: 20210430

REACTIONS (7)
  - Hyperthyroidism [Recovering/Resolving]
  - Injection site reaction [Recovered/Resolved]
  - Injection site reaction [Recovering/Resolving]
  - Hyperlipidaemia [Recovering/Resolving]
  - COVID-19 [Recovering/Resolving]
  - Diabetes mellitus [Recovering/Resolving]
  - Pneumonia bacterial [Recovering/Resolving]

NARRATIVE: CASE EVENT DATE: 20180602
